FAERS Safety Report 9121233 (Version 1)
Quarter: 2013Q1

REPORT INFORMATION
  Report Type: Spontaneous
  Country: US (occurrence: US)
  Receive Date: 20130225
  Receipt Date: 20130225
  Transmission Date: 20140127
  Serious: Yes (Other)
  Sender: FDA-Public Use
  Company Number: US-ASTRAZENECA-2013SE10647

PATIENT
  Sex: Male

DRUGS (4)
  1. LISINOPRIL [Suspect]
     Route: 048
  2. BRILINTA [Suspect]
     Indication: ACUTE CORONARY SYNDROME
     Route: 048
     Dates: start: 2013
  3. STATIN [Concomitant]
  4. BETA BLOCKER [Concomitant]

REACTIONS (1)
  - Nausea [Not Recovered/Not Resolved]
